FAERS Safety Report 5511062-2 (Version None)
Quarter: 2007Q4

REPORT INFORMATION
  Report Type: 
  Country: None (occurrence: None)
  Receive Date: 20071109
  Receipt Date: 20071105
  Transmission Date: 20080405
  Serious: Yes (Death)
  Sender: FDA-Public Use
  Company Number: FR-BAYER-1199211020

PATIENT
  Age: 38 Year
  Sex: Male
  Weight: 58 kg

DRUGS (13)
  1. TRASYLOL [Suspect]
     Indication: PROPHYLAXIS
     Route: 042
     Dates: start: 19920915, end: 19920915
  2. TRASYLOL [Suspect]
     Route: 042
     Dates: start: 19920915, end: 19920915
  3. FENTANYL [Concomitant]
     Dates: start: 19920915, end: 19920915
  4. ETOMIDATE [Concomitant]
     Dates: start: 19920915, end: 19920915
  5. PANCURONIUM BROM. [Concomitant]
     Dates: start: 19920915, end: 19920915
  6. ISOFLURANE [Concomitant]
     Dates: start: 19920915, end: 19920915
  7. VANCOMYCIN [Concomitant]
     Dates: start: 19920915, end: 19920915
  8. AMIKACIN [Concomitant]
     Dates: start: 19920915, end: 19920915
  9. IMIPENEM [Concomitant]
     Dates: start: 19920915, end: 19920915
  10. TRIFLUCAN [Concomitant]
     Dates: start: 19920915, end: 19920915
  11. PIPERACILLIN [Concomitant]
     Dates: start: 19920915
  12. PRED [Concomitant]
     Dates: start: 19920915
  13. AZA [Concomitant]
     Dates: start: 19920915

REACTIONS (3)
  - BLOOD PRESSURE DECREASED [None]
  - ELECTROMECHANICAL DISSOCIATION [None]
  - PULMONARY ARTERY THROMBOSIS [None]
